FAERS Safety Report 7731928-2 (Version None)
Quarter: 2011Q3

REPORT INFORMATION
  Report Type: 
  Country: None (occurrence: None)
  Receive Date: 20110906
  Receipt Date: 20110713
  Transmission Date: 20111222
  Serious: No
  Sender: FDA-Public Use
  Company Number: US-AMGEN-USASP2011035685

PATIENT
  Age: 74 Year
  Sex: Female

DRUGS (19)
  1. INSULIN [Concomitant]
     Dosage: UNK
  2. NEXIUM [Concomitant]
     Dosage: UNK
  3. COLCRYS [Concomitant]
     Dosage: UNK
  4. VICTOZA [Concomitant]
     Dosage: UNK
  5. CRESTOR [Concomitant]
     Dosage: UNK
  6. PROLIA [Suspect]
     Indication: OSTEOPOROSIS POSTMENOPAUSAL
     Dosage: 60 MG, Q6MO
     Dates: start: 20110201
  7. LEXAPRO [Concomitant]
     Dosage: UNK
  8. ASPIRIN [Concomitant]
     Dosage: UNK
  9. VITAMIN D [Concomitant]
     Dosage: 1 IU, UNK
  10. COREG [Concomitant]
     Dosage: UNK
  11. LOVAZA [Concomitant]
     Dosage: UNK
  12. CALCITRIOL [Concomitant]
     Dosage: UNK
  13. ALLOPURINOL [Concomitant]
     Dosage: UNK
  14. AVINZA [Concomitant]
     Dosage: UNK
  15. PERCOCET [Concomitant]
     Dosage: UNK
  16. FUROSEMIDE [Concomitant]
     Dosage: UNK
  17. CALCIUM CARBONATE [Concomitant]
     Dosage: UNK
  18. FOLBEE PLUS [Concomitant]
     Dosage: UNK
  19. CYANOCOBALAMIN [Concomitant]
     Dosage: UNK

REACTIONS (1)
  - RASH [None]
